FAERS Safety Report 10045301 (Version 1)
Quarter: 2014Q1

REPORT INFORMATION
  Report Type: Spontaneous
  Country: US (occurrence: None)
  Receive Date: 20140306
  Receipt Date: 20140306
  Transmission Date: 20141002
  Serious: Yes (Disabling)
  Sender: FDA-Public Use
  Company Number: 163-21880-13044448

PATIENT
  Age: 80 Year
  Sex: Male

DRUGS (18)
  1. REVLIMID (LENALIDOMIDE) (25 MILLIGRAM, CAPSULES) [Suspect]
     Indication: PLASMA CELL MYELOMA
     Dosage: 21 IN 28 D
     Route: 048
     Dates: start: 20130320, end: 20130408
  2. ZOMETA (ZOLEDRONIC ACID) [Concomitant]
  3. ACYCLOVIR [Concomitant]
  4. ASPIRIN (ACETYLSALICYLIC ACID) [Concomitant]
  5. CALCIUM 600 [Concomitant]
  6. FERROUS SULFATE [Concomitant]
  7. LISINOPRIL-HYDROCHLOROTHIAZIDE (PRINZIDE) [Concomitant]
  8. BENEFIBER (CYAMOPSIS TETRAGONOLOBA GUM) [Concomitant]
  9. MAGNESIUM [Concomitant]
  10. MULTIVITAMINS [Concomitant]
  11. NEURONTIN (GABAPENTIN) [Concomitant]
  12. OCUVITE [Concomitant]
  13. PRIMIDONE [Concomitant]
  14. SOTALOL [Concomitant]
  15. VITAMIN D3 (COLECALCIFEROL) [Concomitant]
  16. WARFARIN [Concomitant]
  17. ZOCOR (SIMVASTATIN) [Concomitant]
  18. ZOFRAN (ONDANSETRON HYDROCHLORIDE) [Concomitant]

REACTIONS (2)
  - Fatigue [None]
  - Rash [None]
